FAERS Safety Report 9848444 (Version 1)
Quarter: 2014Q1

REPORT INFORMATION
  Report Type: Spontaneous
  Country: US (occurrence: None)
  Receive Date: 20140124
  Receipt Date: 20140124
  Transmission Date: 20141002
  Serious: Yes (Hospitalization)
  Sender: FDA-Public Use
  Company Number: None

PATIENT
  Age: 58 Year
  Sex: Male
  Weight: 101.8 kg

DRUGS (2)
  1. LISINOPRIL [Suspect]
     Route: 048
     Dates: start: 20131028, end: 20140109
  2. SULFAMETHOXAZOLE/TRIMETHOPRIM [Suspect]
     Route: 048
     Dates: start: 20131212

REACTIONS (2)
  - Hyperkalaemia [None]
  - Renal failure [None]
